FAERS Safety Report 16742992 (Version 2)
Quarter: 2019Q3

REPORT INFORMATION
  Report Type: Spontaneous
  Country: US (occurrence: US)
  Receive Date: 20190827
  Receipt Date: 20190923
  Transmission Date: 20191005
  Serious: Yes (Other)
  Sender: FDA-Public Use
  Company Number: US-SA-2019SA236633

PATIENT
  Age: 79 Year
  Sex: Female

DRUGS (3)
  1. PRALUENT [Suspect]
     Active Substance: ALIROCUMAB
     Dosage: 75 MG, QOW
     Dates: start: 201908
  2. PRALUENT [Suspect]
     Active Substance: ALIROCUMAB
     Indication: BLOOD CHOLESTEROL INCREASED
     Dosage: 75 MG, QOW
     Dates: start: 2019
  3. CRESTOR [Concomitant]
     Active Substance: ROSUVASTATIN CALCIUM
     Indication: BLOOD CHOLESTEROL INCREASED

REACTIONS (6)
  - Arteriosclerosis [Unknown]
  - Transient ischaemic attack [Unknown]
  - Blood cholesterol decreased [Unknown]
  - Product dose omission [Unknown]
  - Low density lipoprotein decreased [Unknown]
  - Device defective [Unknown]

NARRATIVE: CASE EVENT DATE: 2019
